FAERS Safety Report 10236563 (Version 1)
Quarter: 2014Q2

REPORT INFORMATION
  Report Type: Spontaneous
  Country: AR (occurrence: AR)
  Receive Date: 20140613
  Receipt Date: 20140613
  Transmission Date: 20141212
  Serious: Yes (Other)
  Sender: FDA-Public Use
  Company Number: PHHY2014AR070917

PATIENT
  Age: 43 Year
  Sex: Male

DRUGS (3)
  1. BISOPROLOL [Suspect]
     Indication: HYPERTENSION
     Dosage: 5 MG/ DAY
  2. CAFFEINE W/IBUPROFEN [Suspect]
     Indication: HEADACHE
     Dosage: 500 MG, UNK
  3. ERGOTAMINE TARTRATE [Suspect]
     Indication: HEADACHE
     Dosage: 1 MG, UNK

REACTIONS (10)
  - Extremity necrosis [Recovering/Resolving]
  - Pain in extremity [Recovering/Resolving]
  - Cyanosis [Recovering/Resolving]
  - Vasospasm [Recovering/Resolving]
  - Peripheral ischaemia [Recovering/Resolving]
  - Limb injury [None]
  - Traumatic haematoma [None]
  - Arterial occlusive disease [None]
  - Infection [None]
  - Injury [None]
